FAERS Safety Report 8270882 (Version 4)
Quarter: 2013Q2

REPORT INFORMATION
  Report Type: Spontaneous
  Country: DE (occurrence: DE)
  Receive Date: 20111201
  Receipt Date: 20130401
  Transmission Date: 20140414
  Serious: Yes (Hospitalization, Other)
  Sender: FDA-Public Use
  Company Number: PHHY2011DE103532

PATIENT
  Age: 57 Year
  Sex: Female
  Weight: 52 kg

DRUGS (2)
  1. ZOMETA [Suspect]
     Indication: METASTASES TO BONE
     Dosage: 4 MG, EVERY 4 WEEK
     Route: 042
     Dates: start: 200910, end: 201112
  2. FEMARA [Suspect]
     Indication: BREAST CANCER
     Dosage: 1 DF,DAILY
     Dates: start: 200910, end: 201112

REACTIONS (12)
  - Myelofibrosis [Recovered/Resolved]
  - Splenomegaly [Recovered/Resolved]
  - Pancytopenia [Recovered/Resolved]
  - Pyrexia [Recovered/Resolved]
  - Meningeal disorder [Recovered/Resolved]
  - Paraesthesia [Recovered/Resolved]
  - Colitis [Recovered/Resolved]
  - Dry mouth [Recovered/Resolved]
  - Bone pain [Recovered/Resolved]
  - Myalgia [Recovered/Resolved]
  - Osteosclerosis [Unknown]
  - Metastasis [Unknown]
